FAERS Safety Report 4874737-4 (Version None)
Quarter: 2006Q1

REPORT INFORMATION
  Report Type: 
  Country: None (occurrence: None)
  Receive Date: 20060103
  Receipt Date: 20060103
  Transmission Date: 20060701
  Serious: Yes (Other)
  Sender: FDA-Public Use
  Company Number: None

PATIENT
  Sex: Male
  Weight: 75.6 kg

DRUGS (3)
  1. FLUOROURACIL [Suspect]
     Indication: SQUAMOUS CELL CARCINOMA
     Dosage: SEE IMAGE
     Dates: start: 20051121, end: 20051125
  2. FLUOROURACIL [Suspect]
     Indication: SQUAMOUS CELL CARCINOMA
     Dosage: SEE IMAGE
     Dates: start: 20051121
  3. CISPLATIN [Suspect]
     Dosage: SEE IMAGE
     Dates: start: 20051121, end: 20051121

REACTIONS (2)
  - NAUSEA [None]
  - VOMITING [None]
